FAERS Safety Report 4955179-X (Version None)
Quarter: 2006Q1

REPORT INFORMATION
  Report Type: 
  Country: None (occurrence: None)
  Receive Date: 20060322
  Receipt Date: 20060313
  Transmission Date: 20060701
  Serious: Yes (Other)
  Sender: FDA-Public Use
  Company Number: 2006035275

PATIENT
  Sex: Female
  Weight: 81.6475 kg

DRUGS (6)
  1. LIPITOR [Suspect]
     Indication: BLOOD CHOLESTEROL
  2. CELEBREX [Suspect]
     Indication: OSTEOARTHRITIS
  3. BEXTRA [Suspect]
     Indication: OSTEOARTHRITIS
  4. ATENOLOL [Concomitant]
  5. ASPIRIN [Concomitant]
  6. COUMADIN [Concomitant]

REACTIONS (3)
  - DRUG INEFFECTIVE [None]
  - OSTEOARTHRITIS [None]
  - THROMBOSIS [None]
